FAERS Safety Report 6202699-6 (Version None)
Quarter: 2009Q2

REPORT INFORMATION
  Report Type: 
  Country: None (occurrence: None)
  Receive Date: 20090526
  Receipt Date: 20090515
  Transmission Date: 20091009
  Serious: Yes (Other)
  Sender: FDA-Public Use
  Company Number: PHHY2009GB06045

PATIENT
  Sex: Female

DRUGS (5)
  1. CLOZARIL [Suspect]
     Indication: SCHIZOPHRENIA
     Dosage: 250 MG, QD
     Route: 048
     Dates: start: 20040326
  2. CLOZARIL [Suspect]
     Dosage: 300 MG, QD
     Route: 048
  3. CLOZARIL [Suspect]
     Dosage: 200 MG, QD
     Route: 048
  4. CLOZARIL [Suspect]
     Dosage: 150 MG
     Route: 048
  5. CLOZARIL [Suspect]
     Dosage: 175 MG DAILY
     Dates: start: 20090323

REACTIONS (6)
  - ANTIPSYCHOTIC DRUG LEVEL INCREASED [None]
  - ELECTROCARDIOGRAM ABNORMAL [None]
  - ELECTROCARDIOGRAM PR PROLONGATION [None]
  - ELECTROCARDIOGRAM QT PROLONGED [None]
  - HYPOMETABOLISM [None]
  - TREATMENT NONCOMPLIANCE [None]
